FAERS Safety Report 25864191 (Version 2)
Quarter: 2025Q4

REPORT INFORMATION
  Report Type: Other
  Country: US (occurrence: US)
  Receive Date: 20250930
  Receipt Date: 20251031
  Transmission Date: 20260119
  Serious: No
  Sender: TRAVERE THERAPEUTICS
  Company Number: US-TRAVERE-2025TVT01525

PATIENT
  Sex: Male

DRUGS (1)
  1. FILSPARI [Suspect]
     Active Substance: SPARSENTAN
     Indication: Chronic kidney disease
     Dosage: LOT NUMBER: 1976072, EXPIRY DATE: 31-MAY-2026
     Route: 048
     Dates: start: 202505

REACTIONS (4)
  - Eye swelling [Recovering/Resolving]
  - Pain in extremity [None]
  - Arthralgia [Unknown]
  - Product use in unapproved indication [Unknown]
